FAERS Safety Report 6256602-3 (Version None)
Quarter: 2009Q3

REPORT INFORMATION
  Report Type: 
  Country: None (occurrence: None)
  Receive Date: 20090706
  Receipt Date: 20090630
  Transmission Date: 20100115
  Serious: Yes (Hospitalization)
  Sender: FDA-Public Use
  Company Number: DE-BAYER-200916831GPV

PATIENT
  Age: 44 Year
  Sex: Male
  Weight: 92 kg

DRUGS (5)
  1. SORAFENIB [Suspect]
     Indication: METASTATIC MALIGNANT MELANOMA
     Route: 048
     Dates: start: 20090303, end: 20090317
  2. PEG-INTRON [Suspect]
     Indication: METASTATIC MALIGNANT MELANOMA
     Route: 058
     Dates: start: 20090303, end: 20090310
  3. EDRONAX [Concomitant]
     Indication: ANTIDEPRESSANT THERAPY
     Route: 048
  4. MIRTAZELON [Concomitant]
     Indication: ANTIDEPRESSANT THERAPY
     Route: 048
  5. BEROTEC [Concomitant]
     Indication: ASTHMA

REACTIONS (4)
  - DEHYDRATION [None]
  - HYPERVENTILATION [None]
  - TACHYCARDIA [None]
  - THROMBOCYTOPENIA [None]
